FAERS Safety Report 18116298 (Version 1)
Quarter: 2020Q3

REPORT INFORMATION
  Report Type: Spontaneous
  Country: IT (occurrence: IT)
  Receive Date: 20200805
  Receipt Date: 20200805
  Transmission Date: 20201103
  Serious: Yes (Hospitalization)
  Sender: FDA-Public Use
  Company Number: IT-CELGENEUS-ITA-20200704158

PATIENT
  Age: 79 Year
  Sex: Female

DRUGS (3)
  1. NAB?PACLITAXEL [Suspect]
     Active Substance: PACLITAXEL
     Indication: PRODUCT USED FOR UNKNOWN INDICATION
     Dosage: PACLITAXEL KABI 6 MG/ML
     Route: 041
     Dates: start: 20200525, end: 20200525
  2. TRIMETON [Concomitant]
     Active Substance: CHLORPHENIRAMINE MALEATE
     Route: 042
     Dates: start: 20200525, end: 20200525
  3. BETAMETHASONE. [Concomitant]
     Active Substance: BETAMETHASONE
     Indication: PRODUCT USED FOR UNKNOWN INDICATION
     Route: 042
     Dates: start: 20200525, end: 20200525

REACTIONS (5)
  - Nausea [Recovered/Resolved]
  - Anal sphincter atony [Recovered/Resolved]
  - Sensory loss [Recovered/Resolved]
  - Vomiting [Recovered/Resolved]
  - Retching [Recovered/Resolved]

NARRATIVE: CASE EVENT DATE: 20200525
